FAERS Safety Report 11443164 (Version 1)
Quarter: 2015Q3

REPORT INFORMATION
  Report Type: Spontaneous
  Country: FR (occurrence: FR)
  Receive Date: 20150901
  Receipt Date: 20150901
  Transmission Date: 20151125
  Serious: Yes (Life-Threatening, Hospitalization)
  Sender: FDA-Public Use
  Company Number: FR-PFIZER INC-2015287775

PATIENT
  Age: 2 Day
  Sex: Male

DRUGS (2)
  1. PROSTINE VR [Suspect]
     Active Substance: ALPROSTADIL
     Dosage: 0.04 ?G/KG BY MINUTE
     Route: 041
     Dates: start: 20150719, end: 20150720
  2. PEDIAVEN AP-HP NOUVEAU-NE1 [Suspect]
     Active Substance: AMINO ACIDS\DEXTROSE\ELECTROLYTES NOS
     Dosage: 8 ML BY HOUR
     Route: 041
     Dates: start: 20150719, end: 20150720

REACTIONS (8)
  - Acute kidney injury [Recovered/Resolved]
  - Abdominal distension [Recovered/Resolved]
  - Hyperglycaemia [Recovered/Resolved]
  - Anuria [Recovered/Resolved]
  - Cardiovascular insufficiency [Recovered/Resolved]
  - Hypercalcaemia [Recovered/Resolved]
  - Administration site extravasation [Recovered/Resolved]
  - Hyperphosphataemia [Recovered/Resolved]

NARRATIVE: CASE EVENT DATE: 20150720
